FAERS Safety Report 6504551-5 (Version None)
Quarter: 2009Q4

REPORT INFORMATION
  Report Type: 
  Country: None (occurrence: None)
  Receive Date: 20091215
  Receipt Date: 20091204
  Transmission Date: 20100525
  Serious: Yes (Death, Hospitalization, Disabling)
  Sender: FDA-Public Use
  Company Number: 2009AC000212

PATIENT
  Age: 57 Year
  Sex: Male

DRUGS (22)
  1. DIGOXIN [Suspect]
     Dosage: 0.125 MG, QD, PO
     Route: 048
  2. ENALAPRIL [Concomitant]
  3. ATENOLOL [Concomitant]
  4. AMARYL [Concomitant]
  5. ISOSORBIDE [Concomitant]
  6. HUMULIN R [Concomitant]
  7. LOVENOX [Concomitant]
  8. ASPIRIN [Concomitant]
  9. VASOTEC [Concomitant]
  10. LIPITOR [Concomitant]
  11. COUMADIN [Concomitant]
  12. PLAVIX [Concomitant]
  13. ENALAPRIL [Concomitant]
  14. LASIX [Concomitant]
  15. NITROGLYCERIN [Concomitant]
  16. SPIRONOLACTONE [Concomitant]
  17. FUROSEMIDE [Concomitant]
  18. GLIPIZIDE [Concomitant]
  19. FLOXIN [Concomitant]
  20. POTASSIUM [Concomitant]
  21. GLUCOTROL [Concomitant]
  22. ZESTRIL [Concomitant]

REACTIONS (9)
  - ANXIETY [None]
  - CAROTID ARTERY STENOSIS [None]
  - CUTANEOUS LUPUS ERYTHEMATOSUS [None]
  - ECONOMIC PROBLEM [None]
  - HYPERTENSION [None]
  - MYOCARDIAL ISCHAEMIA [None]
  - PAIN [None]
  - PAIN IN EXTREMITY [None]
  - PHOTODERMATOSIS [None]
